FAERS Safety Report 5035797-3 (Version None)
Quarter: 2006Q2

REPORT INFORMATION
  Report Type: 
  Country: None (occurrence: None)
  Receive Date: 20060526
  Receipt Date: 20060407
  Transmission Date: 20061013
  Serious: No
  Sender: FDA-Public Use
  Company Number: FABR-11507

PATIENT
  Age: 5 Year
  Sex: Male
  Weight: 17.8 kg

DRUGS (4)
  1. FABRAZYME [Suspect]
     Indication: FABRY'S DISEASE
     Dosage: 20 MG Q2WKS  IV
     Route: 042
     Dates: start: 20060113
  2. BENADRYL [Concomitant]
  3. MOTRIN [Concomitant]
  4. TYLENOL (CAPLET) [Concomitant]

REACTIONS (2)
  - CHILLS [None]
  - PALLOR [None]
